FAERS Safety Report 12740129 (Version 5)
Quarter: 2017Q2

REPORT INFORMATION
  Report Type: Report from Study
  Country: US (occurrence: US)
  Receive Date: 20160913
  Receipt Date: 20170628
  Transmission Date: 20170830
  Serious: Yes (Death, Hospitalization)
  Sender: FDA-Public Use
  Company Number: US-ACTELION-A-NJ2016-142050

PATIENT
  Age: 88 Year
  Sex: Female

DRUGS (3)
  1. AMLODIPINE [Concomitant]
     Active Substance: AMLODIPINE BESYLATE
  2. OPSUMIT [Suspect]
     Active Substance: MACITENTAN
     Indication: PULMONARY ARTERIAL HYPERTENSION
     Dosage: 10 MG, QD
     Route: 048
     Dates: start: 20140109
  3. ADCIRCA [Concomitant]
     Active Substance: TADALAFIL

REACTIONS (5)
  - Lower limb fracture [Unknown]
  - Dyspnoea [Unknown]
  - Hip fracture [Unknown]
  - Fall [Unknown]
  - Death [Fatal]

NARRATIVE: CASE EVENT DATE: 20170613
